FAERS Safety Report 13826863 (Version 1)
Quarter: 2017Q3

REPORT INFORMATION
  Report Type: Spontaneous
  Country: US (occurrence: US)
  Receive Date: 20170802
  Receipt Date: 20170802
  Transmission Date: 20171127
  Serious: No
  Sender: FDA-Public Use
  Company Number: US-ROCHE-658653

PATIENT
  Age: 58 Year
  Sex: Female

DRUGS (2)
  1. QUINAPRIL. [Concomitant]
     Active Substance: QUINAPRIL
     Route: 065
  2. BONIVA [Suspect]
     Active Substance: IBANDRONATE SODIUM
     Indication: OSTEOPOROSIS
     Route: 048

REACTIONS (2)
  - Musculoskeletal pain [Recovering/Resolving]
  - Night sweats [Not Recovered/Not Resolved]
